FAERS Safety Report 7356503-3 (Version None)
Quarter: 2011Q1

REPORT INFORMATION
  Report Type: 
  Country: None (occurrence: None)
  Receive Date: 20110316
  Receipt Date: 20110302
  Transmission Date: 20110831
  Serious: Yes (Hospitalization, Other)
  Sender: FDA-Public Use
  Company Number: PHHY2011JP18574

PATIENT
  Sex: Male

DRUGS (18)
  1. PROGRAF [Suspect]
     Dosage: 4 MG, UNK
     Route: 048
     Dates: start: 20100603, end: 20100728
  2. PROGRAF [Suspect]
     Dosage: 6.0 MG, UNK
     Route: 048
     Dates: start: 20100812, end: 20100813
  3. PROGRAF [Suspect]
     Dosage: 6.0 MG, UNK
     Route: 048
     Dates: start: 20100819, end: 20100823
  4. VENOGLOBULIN [Concomitant]
     Dosage: 20 MG, UNK
     Route: 042
     Dates: start: 20100817, end: 20100822
  5. CERTICAN [Suspect]
     Dosage: 4.5 MG, UNK
     Route: 048
     Dates: start: 20100814
  6. PROGRAF [Suspect]
     Dosage: 5.0 MG, UNK
     Route: 048
     Dates: start: 20100824
  7. PROGRAF [Suspect]
     Dosage: 5 MG, UNK
     Route: 048
     Dates: start: 20081003, end: 20100505
  8. CERTICAN [Suspect]
     Dosage: 3.5 MG, UNK
     Route: 048
     Dates: start: 20100401, end: 20100813
  9. LIPITOR [Concomitant]
     Dosage: 10 MG, UNK
     Route: 048
     Dates: start: 20090327
  10. PREDONINE [Suspect]
     Dosage: 5 MG, UNK
     Route: 048
     Dates: start: 20080124
  11. PROGRAF [Suspect]
     Dosage: 4.5 MG, UNK
     Route: 048
     Dates: start: 20100729, end: 20100811
  12. PROGRAF [Suspect]
     Dosage: 8.0 MG, UNK
     Route: 048
     Dates: start: 20100814, end: 20100816
  13. PROGRAF [Suspect]
     Dosage: 7.0 MG, UNK
     Route: 048
     Dates: start: 20100817, end: 20100818
  14. RENIVACE [Concomitant]
     Dosage: 2.5 MG, UNK
     Route: 048
     Dates: start: 20090430
  15. AMARYL [Concomitant]
     Dosage: 1 MG, UNK
     Route: 048
     Dates: start: 20090724
  16. PROGRAF [Suspect]
     Dosage: 4.5 MG, UNK
     Route: 048
     Dates: start: 20100506, end: 20100602
  17. CERTICAN [Suspect]
     Indication: HEART TRANSPLANT
     Dosage: UNK
     Route: 048
     Dates: start: 20081106
  18. CERTICAN [Suspect]
     Dosage: 3.0 MG, UNK
     Route: 048
     Dates: start: 20091002, end: 20100331

REACTIONS (3)
  - BLOOD CREATINE PHOSPHOKINASE INCREASED [None]
  - PARVOVIRUS INFECTION [None]
  - ANAEMIA [None]
